FAERS Safety Report 19951288 (Version 1)
Quarter: 2021Q4

REPORT INFORMATION
  Report Type: Spontaneous
  Country: JP (occurrence: JP)
  Receive Date: 20211014
  Receipt Date: 20211014
  Transmission Date: 20220303
  Serious: Yes (Death, Other)
  Sender: FDA-Public Use
  Company Number: JP-EISAI MEDICAL RESEARCH-EC-2021-100802

PATIENT

DRUGS (2)
  1. ZONISAMIDE [Suspect]
     Active Substance: ZONISAMIDE
     Indication: Parkinsonism
     Dosage: 25 MG, QD (TRERIEF)
     Route: 048
  2. ZONISAMIDE [Suspect]
     Active Substance: ZONISAMIDE
     Indication: Dementia with Lewy bodies

REACTIONS (1)
  - Pulmonary haemorrhage [Fatal]
